FAERS Safety Report 7794916-6 (Version None)
Quarter: 2011Q4

REPORT INFORMATION
  Report Type: 
  Country: None (occurrence: None)
  Receive Date: 20111004
  Receipt Date: 20110928
  Transmission Date: 20120403
  Serious: Yes (Life-Threatening, Hospitalization, Disabling, Other)
  Sender: FDA-Public Use
  Company Number: US-BAYER-2011-047789

PATIENT
  Age: 87 Year
  Sex: Male

DRUGS (3)
  1. METOPROLOL TARTRATE [Concomitant]
     Indication: HYPERTENSION
  2. HYDROCHLOROTHIAZIDE [Concomitant]
     Indication: HYPERTENSION
  3. AVELOX [Suspect]
     Indication: PNEUMONIA
     Dosage: 400 MG, QD
     Route: 048
     Dates: start: 20110520, end: 20110520

REACTIONS (7)
  - HYPOTENSION [None]
  - CONVULSION [None]
  - RASH [None]
  - ANGIOEDEMA [None]
  - ANAPHYLACTIC REACTION [None]
  - DYSPNOEA [None]
  - PYREXIA [None]
